FAERS Safety Report 5916238-8 (Version None)
Quarter: 2008Q4

REPORT INFORMATION
  Report Type: 
  Country: None (occurrence: None)
  Receive Date: 20081013
  Receipt Date: 20080930
  Transmission Date: 20090506
  Serious: Yes (Other)
  Sender: FDA-Public Use
  Company Number: PHHY2008IE21476

PATIENT
  Sex: Female

DRUGS (6)
  1. ZOMETA [Suspect]
     Indication: METASTASES TO BONE
     Dosage: 4 MG, UNK
     Dates: start: 20080401
  2. ZOMETA [Suspect]
     Dosage: UNK
     Dates: start: 20080701
  3. ZOMETA [Suspect]
     Dosage: UNK
     Dates: start: 20080801
  4. CAPECITABINE [Concomitant]
     Indication: BREAST CANCER METASTATIC
     Dosage: UNK
     Route: 048
     Dates: start: 20080401
  5. CORTICOSTEROIDS [Concomitant]
  6. CHEMOTHERAPEUTICS NOS [Concomitant]
     Indication: BREAST CANCER METASTATIC
     Dosage: UNK
     Route: 048

REACTIONS (4)
  - ENDODONTIC PROCEDURE [None]
  - ORAL PAIN [None]
  - PAIN IN JAW [None]
  - PULPITIS DENTAL [None]
